FAERS Safety Report 12154527 (Version 1)
Quarter: 2016Q1

REPORT INFORMATION
  Report Type: Spontaneous
  Country: US (occurrence: US)
  Receive Date: 20160307
  Receipt Date: 20160307
  Transmission Date: 20160526
  Serious: Yes (Other)
  Sender: FDA-Public Use
  Company Number: US-BRACCO-013269

PATIENT
  Age: 2 Month
  Sex: Male

DRUGS (1)
  1. GASTROGRAFIN [Suspect]
     Active Substance: DIATRIZOATE MEGLUMINE\DIATRIZOATE SODIUM
     Indication: BARIUM ENEMA
     Route: 054

REACTIONS (4)
  - Pyrexia [Unknown]
  - Cytomegalovirus viraemia [Unknown]
  - Tachypnoea [Unknown]
  - Staphylococcal infection [Unknown]
